FAERS Safety Report 8792480 (Version 2)
Quarter: 2012Q4

REPORT INFORMATION
  Report Type: 
  Country: FR (occurrence: FR)
  Receive Date: 20120918
  Receipt Date: 20121009
  Transmission Date: 20130627
  Serious: Yes (Life-Threatening, Hospitalization)
  Sender: FDA-Public Use
  Company Number: FR-ROCHE-1128818

PATIENT
  Age: 87 Year
  Sex: Male

DRUGS (2)
  1. ZELBORAF [Suspect]
     Indication: METASTATIC MALIGNANT MELANOMA
     Route: 048
     Dates: start: 20120831
  2. ZELBORAF [Suspect]
     Route: 065
     Dates: start: 20120802, end: 20120818

REACTIONS (1)
  - Myocardial infarction [Recovering/Resolving]
